FAERS Safety Report 25347552 (Version 2)
Quarter: 2025Q4

REPORT INFORMATION
  Report Type: Spontaneous
  Country: EU (occurrence: EU)
  Receive Date: 20250522
  Receipt Date: 20251223
  Transmission Date: 20260118
  Serious: Yes (Hospitalization, Other)
  Sender: MERCK SHARP & DOHME LLC
  Company Number: None

PATIENT
  Age: 67 Year
  Sex: Male
  Weight: 94 kg

DRUGS (6)
  1. KEYTRUDA [Suspect]
     Active Substance: PEMBROLIZUMAB
     Indication: Bladder transitional cell carcinoma
     Dosage: DOSE DESCRIPTION : C1J8?CONCENTRATION: 25 MILLIGRAM PER MILLILITRE
     Route: 042
     Dates: start: 20241017, end: 20241017
  2. KEYTRUDA [Suspect]
     Active Substance: PEMBROLIZUMAB
     Indication: Bladder transitional cell carcinoma
     Dosage: DOSE DESCRIPTION : C1J8
     Route: 042
     Dates: start: 20241024, end: 20241024
  3. KEYTRUDA [Suspect]
     Active Substance: PEMBROLIZUMAB
     Indication: Bladder transitional cell carcinoma
     Dosage: DOSE DESCRIPTION : C2J1
     Route: 042
     Dates: start: 20241107, end: 20241107
  4. PADCEV [Suspect]
     Active Substance: ENFORTUMAB VEDOTIN-EJFV
     Indication: Bladder transitional cell carcinoma
     Dosage: DOSE DESCRIPTION : C1J1
     Route: 042
     Dates: start: 20241017, end: 20241017
  5. PADCEV [Suspect]
     Active Substance: ENFORTUMAB VEDOTIN-EJFV
     Indication: Bladder transitional cell carcinoma
     Dosage: DOSE DESCRIPTION : C1J8
     Route: 042
     Dates: start: 20241024, end: 20241024
  6. PADCEV [Suspect]
     Active Substance: ENFORTUMAB VEDOTIN-EJFV
     Indication: Bladder transitional cell carcinoma
     Dosage: DOSE DESCRIPTION : C2J1
     Route: 042
     Dates: start: 20241107, end: 20241107

REACTIONS (6)
  - Neuropathy peripheral [Not Recovered/Not Resolved]
  - Asthenia [Not Recovered/Not Resolved]
  - Gastrointestinal disorder [Recovered/Resolved]
  - Skin exfoliation [Not Recovered/Not Resolved]
  - Septic shock [Recovered/Resolved]
  - Peritonitis [Recovered/Resolved]

NARRATIVE: CASE EVENT DATE: 20241101
